FAERS Safety Report 10260178 (Version 1)
Quarter: 2014Q2

REPORT INFORMATION
  Report Type: Spontaneous
  Country: ES (occurrence: ES)
  Receive Date: 20140625
  Receipt Date: 20140625
  Transmission Date: 20141212
  Serious: Yes (Life-Threatening, Hospitalization)
  Sender: FDA-Public Use
  Company Number: ES-ABBVIE-14P-144-1251659-00

PATIENT
  Age: 63 Year
  Sex: Male

DRUGS (1)
  1. HUMIRA [Suspect]
     Indication: HIDRADENITIS
     Route: 058
     Dates: start: 201211, end: 20140513

REACTIONS (5)
  - Anal fistula [Recovering/Resolving]
  - Sepsis [Recovering/Resolving]
  - Retroperitoneal abscess [Recovering/Resolving]
  - Fall [Recovered/Resolved]
  - Off label use [Recovered/Resolved]
